FAERS Safety Report 8621061 (Version 4)
Quarter: 2012Q4

REPORT INFORMATION
  Report Type: 
  Country: US (occurrence: US)
  Receive Date: 20120619
  Receipt Date: 20121029
  Transmission Date: 20130627
  Serious: No
  Sender: FDA-Public Use
  Company Number: US-BAYER-2012-058300

PATIENT
  Age: 35 Year
  Sex: Female
  Weight: 78.46 kg

DRUGS (2)
  1. MIRENA [Suspect]
     Dosage: 20 mcg/24hr, CONT
     Route: 015
  2. SYNTHROID [Concomitant]
     Indication: THYROID DISORDER
     Dosage: 50 mg, QD
     Route: 048

REACTIONS (2)
  - Pregnancy with contraceptive device [None]
  - Device expulsion [None]
